FAERS Safety Report 18401035 (Version 1)
Quarter: 2020Q4

REPORT INFORMATION
  Report Type: Spontaneous
  Country: DE (occurrence: NL)
  Receive Date: 20201019
  Receipt Date: 20201019
  Transmission Date: 20210114
  Serious: Yes (Hospitalization)
  Sender: FDA-Public Use
  Company Number: NL-ELI_LILLY_AND_COMPANY-NL202010006215

PATIENT
  Age: 32 Year

DRUGS (3)
  1. ERBITUX [Suspect]
     Active Substance: CETUXIMAB
     Indication: COLON CANCER METASTATIC
     Dosage: 5MG/ML 100ML, UNKNOWN
     Route: 065
     Dates: start: 20201002
  2. ENCORAFENIB [Suspect]
     Active Substance: ENCORAFENIB
     Indication: COLON CANCER METASTATIC
     Dosage: 75 MG, UNK
     Route: 065
     Dates: start: 20201002
  3. ERBITUX [Suspect]
     Active Substance: CETUXIMAB
     Dosage: 5MG/ML 20ML, UNKNOWN
     Route: 065
     Dates: start: 20201002

REACTIONS (4)
  - Off label use [Unknown]
  - Nausea [Recovered/Resolved]
  - Atrial fibrillation [Recovered/Resolved]
  - Vomiting [Recovered/Resolved]

NARRATIVE: CASE EVENT DATE: 20201002
